FAERS Safety Report 13588928 (Version 1)
Quarter: 2017Q2

REPORT INFORMATION
  Report Type: Spontaneous
  Country: US (occurrence: US)
  Receive Date: 20170529
  Receipt Date: 20170529
  Transmission Date: 20170830
  Serious: No
  Sender: FDA-Public Use
  Company Number: US-ASTRAZENECA-2017SE54654

PATIENT
  Sex: Female
  Weight: 65.8 kg

DRUGS (8)
  1. RADIACNE ALPHA LIPOIC ACID [Concomitant]
     Route: 048
     Dates: start: 201610
  2. ANASTROZOLE. [Suspect]
     Active Substance: ANASTROZOLE
     Indication: OESTROGEN THERAPY
     Route: 048
     Dates: start: 201610
  3. ALENDRONATE [Concomitant]
     Active Substance: ALENDRONATE SODIUM
     Route: 048
     Dates: start: 201610
  4. C0Q10 [Concomitant]
     Indication: SUPPLEMENTATION THERAPY
     Dosage: 200 MG
  5. METFORMIN [Concomitant]
     Active Substance: METFORMIN HYDROCHLORIDE
     Indication: DIABETES MELLITUS
     Route: 048
     Dates: start: 2008
  6. EUCRISA [Suspect]
     Active Substance: CRISABOROLE
     Indication: DERMATITIS ATOPIC
     Route: 065
     Dates: start: 20170428
  7. ALCLOMETASONE [Concomitant]
     Active Substance: ALCLOMETASONE
     Indication: DERMATITIS ATOPIC
  8. VITAMIN D3 [Concomitant]
     Active Substance: CHOLECALCIFEROL
     Indication: VITAMIN SUPPLEMENTATION

REACTIONS (5)
  - Memory impairment [Unknown]
  - Cataract [Unknown]
  - Bone pain [Unknown]
  - Myalgia [Unknown]
  - Dermatitis atopic [Unknown]
